FAERS Safety Report 15103807 (Version 1)
Quarter: 2018Q3

REPORT INFORMATION
  Report Type: Report from Study
  Country: ES (occurrence: ES)
  Receive Date: 20180703
  Receipt Date: 20180703
  Transmission Date: 20181010
  Serious: Yes (Hospitalization)
  Sender: FDA-Public Use
  Company Number: ES-DEPOMED, INC.-ES-2016DEP011287

PATIENT
  Age: 68 Year
  Sex: Male
  Weight: 86 kg

DRUGS (2)
  1. MORPHINE SULFATE. [Concomitant]
     Active Substance: MORPHINE SULFATE
     Indication: CANCER PAIN
     Dosage: UNK
  2. TAPENTADOL HYDROCHLORIDE [Suspect]
     Active Substance: TAPENTADOL HYDROCHLORIDE
     Indication: CANCER PAIN
     Dosage: 100 MG, BID
     Route: 048
     Dates: start: 20140519, end: 20140522

REACTIONS (8)
  - Agitation [Recovered/Resolved]
  - Drug ineffective [Recovered/Resolved]
  - Fungal infection [Recovered/Resolved]
  - Neurotoxicity [Recovered/Resolved]
  - Nervousness [Unknown]
  - Hyperaesthesia [Recovered/Resolved]
  - Cognitive disorder [Recovered/Resolved]
  - Anxiety [Recovered/Resolved]

NARRATIVE: CASE EVENT DATE: 20130521
